FAERS Safety Report 4971990-3 (Version None)
Quarter: 2006Q2

REPORT INFORMATION
  Report Type: 
  Country: None (occurrence: None)
  Receive Date: 20060412
  Receipt Date: 20060412
  Transmission Date: 20061013
  Serious: Yes (Hospitalization)
  Sender: FDA-Public Use
  Company Number: None

PATIENT
  Sex: Male
  Weight: 99.23 kg

DRUGS (1)
  1. FELODIPINE  10 MG SA TABLET [Suspect]
     Indication: CARDIAC FAILURE CONGESTIVE
     Dosage: 10 MG QD PO
     Route: 048
     Dates: start: 20050322, end: 20050602

REACTIONS (1)
  - ANGINA PECTORIS [None]
